FAERS Safety Report 6239411-0 (Version None)
Quarter: 2009Q2

REPORT INFORMATION
  Report Type: 
  Country: None (occurrence: None)
  Receive Date: 20090618
  Receipt Date: 20090618
  Transmission Date: 20091009
  Serious: No
  Sender: FDA-Public Use
  Company Number: None

PATIENT
  Age: 50 Year
  Sex: Female
  Weight: 50.8029 kg

DRUGS (1)
  1. ZICAMCOLD REMEDY NASAL GEL NONE ZICAM [Suspect]
     Indication: INFLUENZA
     Dates: start: 20090601, end: 20090602

REACTIONS (1)
  - ANOSMIA [None]
